FAERS Safety Report 24166771 (Version 2)
Quarter: 2024Q4

REPORT INFORMATION
  Report Type: Report from Study
  Country: CA (occurrence: CA)
  Receive Date: 20240802
  Receipt Date: 20241009
  Transmission Date: 20250114
  Serious: Yes (Other)
  Sender: NOVARTIS
  Company Number: CA-002147023-NVSC2024CA154802

PATIENT
  Age: 64 Year
  Sex: Female

DRUGS (1)
  1. COSENTYX [Suspect]
     Active Substance: SECUKINUMAB
     Indication: Psoriatic arthropathy
     Dosage: 300 MG, QMO
     Route: 058
     Dates: start: 20220128

REACTIONS (7)
  - Osteomyelitis [Unknown]
  - Localised infection [Unknown]
  - Pain [Unknown]
  - Inflammation [Unknown]
  - Limb discomfort [Unknown]
  - Swelling [Unknown]
  - Feeling hot [Unknown]

NARRATIVE: CASE EVENT DATE: 20231101
